FAERS Safety Report 11170924 (Version 2)
Quarter: 2015Q2

REPORT INFORMATION
  Report Type: Report from Study
  Country: BR (occurrence: BR)
  Receive Date: 20150608
  Receipt Date: 20150609
  Transmission Date: 20150821
  Serious: Yes (Other)
  Sender: FDA-Public Use
  Company Number: BR-BIOGENIDEC-2015BI074512

PATIENT
  Age: 30 Year
  Sex: Female

DRUGS (1)
  1. AVONEX [Suspect]
     Active Substance: INTERFERON BETA-1A
     Indication: MULTIPLE SCLEROSIS
     Route: 030
     Dates: start: 20110930

REACTIONS (5)
  - Constipation [Recovered/Resolved]
  - Thyroid disorder [Recovered/Resolved]
  - Pharyngitis [Not Recovered/Not Resolved]
  - Hypothyroidism [Recovered/Resolved]
  - Anal fissure [Recovered/Resolved]

NARRATIVE: CASE EVENT DATE: 201306
